FAERS Safety Report 7475276-7 (Version None)
Quarter: 2011Q1

REPORT INFORMATION
  Report Type: 
  Country: None (occurrence: None)
  Receive Date: 20110302
  Receipt Date: 20100925
  Transmission Date: 20110831
  Serious: Yes (Other)
  Sender: FDA-Public Use
  Company Number: 163-21880-10062182

PATIENT
  Age: 56 Year
  Sex: Female
  Weight: 79.3795 kg

DRUGS (3)
  1. REVLIMID [Suspect]
     Indication: MULTIPLE MYELOMA
     Dosage: 10-25 MG, DAILY, PO; 10 MG, 1 IN 1 D, PO; DAILY X 21 DAYS, PO
     Route: 048
     Dates: start: 20090401, end: 20090101
  2. REVLIMID [Suspect]
     Indication: MULTIPLE MYELOMA
     Dosage: 10-25 MG, DAILY, PO; 10 MG, 1 IN 1 D, PO; DAILY X 21 DAYS, PO
     Route: 048
     Dates: start: 20100301, end: 20100501
  3. REVLIMID [Suspect]
     Indication: MULTIPLE MYELOMA
     Dosage: 10-25 MG, DAILY, PO; 10 MG, 1 IN 1 D, PO; DAILY X 21 DAYS, PO
     Route: 048
     Dates: start: 20080301, end: 20081201

REACTIONS (5)
  - FOOT FRACTURE [None]
  - RASH [None]
  - MUSCLE SPASMS [None]
  - IMMUNODEFICIENCY [None]
  - NEUROPATHY PERIPHERAL [None]
